FAERS Safety Report 9606021 (Version 1)
Quarter: 2013Q4

REPORT INFORMATION
  Report Type: Spontaneous
  Country: DE (occurrence: DE)
  Receive Date: 20131008
  Receipt Date: 20131008
  Transmission Date: 20140711
  Serious: Yes (Congenital Anomaly)
  Sender: FDA-Public Use
  Company Number: GXKR2013DE003194

PATIENT
  Age: 1 Day
  Sex: Female
  Weight: 3.43 kg

DRUGS (4)
  1. METOPROLOL [Suspect]
     Indication: PRE-ECLAMPSIA
     Route: 064
  2. SEROQUEL [Suspect]
     Indication: BIPOLAR DISORDER
     Dosage: MATERNAL DOSE: 800 [MG/D ]/ INITIALLY 400 MG/D
     Route: 064
  3. VALPROINSAEURE [Concomitant]
     Indication: BIPOLAR DISORDER
     Dosage: MATERNAL DOSE: 1000 [MG/D ]/ DOSE-REDUCTION SINCE 23JUN08;
     Route: 064
  4. FOLSAEURE [Concomitant]
     Indication: PROPHYLAXIS OF NEURAL TUBE DEFECT
     Dosage: MATERNAL DOSE: 5 [MG/D ]
     Route: 064
     Dates: start: 20080726, end: 20081126

REACTIONS (1)
  - Genital labial adhesions [Unknown]
